FAERS Safety Report 14139119 (Version 1)
Quarter: 2017Q4

REPORT INFORMATION
  Report Type: Spontaneous
  Country: US (occurrence: US)
  Receive Date: 20171027
  Receipt Date: 20171027
  Transmission Date: 20180321
  Serious: Yes (Hospitalization)
  Sender: FDA-Public Use
  Company Number: US-B.I. PHARMACEUTICALS,INC./RIDGEFIELD-2017-BI-057405

PATIENT
  Sex: Female

DRUGS (4)
  1. PRADAXA [Suspect]
     Active Substance: DABIGATRAN ETEXILATE MESYLATE
     Dosage: BID;  FORM STRENGTH: 150 MG; FORMULATION: CAPSULE? ?ACTION(S) TAKEN WITH PRODUCT: DOSE NOT CHANGED
     Route: 048
     Dates: start: 201708
  2. DILTIAZEM. [Concomitant]
     Active Substance: DILTIAZEM
     Indication: PRODUCT USED FOR UNKNOWN INDICATION
     Route: 048
  3. METOPROLOL. [Concomitant]
     Active Substance: METOPROLOL
     Indication: PRODUCT USED FOR UNKNOWN INDICATION
     Route: 048
  4. PRADAXA [Suspect]
     Active Substance: DABIGATRAN ETEXILATE MESYLATE
     Indication: ATRIAL FIBRILLATION
     Dosage: BID;  FORM STRENGTH: 150 MG; FORMULATION: CAPSULE? ?ACTION(S) TAKEN WITH PRODUCT: DRUG WITHDRAWN
     Route: 048
     Dates: start: 2011, end: 201706

REACTIONS (6)
  - Atrioventricular block [Recovered/Resolved]
  - Heart rate increased [Recovered/Resolved]
  - Respiratory failure [Not Recovered/Not Resolved]
  - Heart rate increased [Recovered/Resolved]
  - Hypertension [Recovered/Resolved]
  - Osteoarthritis [Not Recovered/Not Resolved]

NARRATIVE: CASE EVENT DATE: 2012
